FAERS Safety Report 25093039 (Version 4)
Quarter: 2025Q2

REPORT INFORMATION
  Report Type: Spontaneous
  Country: IT (occurrence: IT)
  Receive Date: 20250319
  Receipt Date: 20250613
  Transmission Date: 20250717
  Serious: Yes (Hospitalization, Other)
  Sender: SANOFI AVENTIS
  Company Number: IT-SA-2025SA077837

PATIENT
  Age: 67 Year
  Sex: Male
  Weight: 80 kg

DRUGS (15)
  1. DUPILUMAB [Suspect]
     Active Substance: DUPILUMAB
     Indication: Chronic rhinosinusitis with nasal polyps
     Dates: start: 20240930, end: 202411
  2. SINGULAIR [Concomitant]
     Active Substance: MONTELUKAST SODIUM
     Indication: Asthma
  3. SINGULAIR [Concomitant]
     Active Substance: MONTELUKAST SODIUM
     Indication: Nasal polyps
  4. MOMETASONE [Concomitant]
     Active Substance: MOMETASONE
     Indication: Asthma
  5. MOMETASONE [Concomitant]
     Active Substance: MOMETASONE
     Indication: Nasal polyps
  6. BECLOMETHASONE DIPROPIONATE\FORMOTEROL FUMARATE\GLYCOPYRROLATE [Concomitant]
     Active Substance: BECLOMETHASONE DIPROPIONATE\FORMOTEROL FUMARATE\GLYCOPYRROLATE
     Dates: start: 2025
  7. BECLOMETHASONE DIPROPIONATE\FORMOTEROL FUMARATE\GLYCOPYRROLATE [Concomitant]
     Active Substance: BECLOMETHASONE DIPROPIONATE\FORMOTEROL FUMARATE\GLYCOPYRROLATE
     Dosage: TRIMBOW 2PUFFS TWICE PER DAY
  8. ASPIRIN [Concomitant]
     Active Substance: ASPIRIN
  9. ALFUZOSIN [Concomitant]
     Active Substance: ALFUZOSIN
  10. ROSUVASTATIN [Concomitant]
     Active Substance: ROSUVASTATIN
  11. BISOPROLOL [Concomitant]
     Active Substance: BISOPROLOL
  12. PANTOPRAZOLE [Concomitant]
     Active Substance: PANTOPRAZOLE
  13. RYBELSUS [Concomitant]
     Active Substance: SEMAGLUTIDE
  14. TOUJEO [Concomitant]
     Active Substance: INSULIN GLARGINE
  15. METFORMIN HYDROCHLORIDE [Concomitant]
     Active Substance: METFORMIN HYDROCHLORIDE

REACTIONS (13)
  - Respiratory distress [Unknown]
  - Pneumonia [Unknown]
  - Visual impairment [Unknown]
  - Hypersensitivity vasculitis [Unknown]
  - Pyrexia [Unknown]
  - Ear pain [Unknown]
  - General physical health deterioration [Unknown]
  - Lymphadenopathy [Unknown]
  - Vasculitis [Unknown]
  - Atelectasis [Unknown]
  - Chronic rhinosinusitis with nasal polyps [Unknown]
  - Condition aggravated [Unknown]
  - Oropharyngeal pain [Unknown]

NARRATIVE: CASE EVENT DATE: 20240101
